FAERS Safety Report 4558059-7 (Version None)
Quarter: 2005Q1

REPORT INFORMATION
  Report Type: 
  Country: None (occurrence: None)
  Receive Date: 20050121
  Receipt Date: 20040719
  Transmission Date: 20050727
  Serious: Yes (Other)
  Sender: FDA-Public Use
  Company Number: US-BRISTOL-MYERS SQUIBB COMPANY-12650255

PATIENT
  Age: 69 Year
  Sex: Female

DRUGS (8)
  1. SERZONE [Suspect]
     Route: 048
     Dates: end: 20011214
  2. SYNTHROID [Concomitant]
  3. IMIPRAM TAB [Concomitant]
  4. GLUCOPHAGE [Concomitant]
  5. INDERAL LA [Concomitant]
  6. PREMARIN [Concomitant]
  7. NIACIN [Concomitant]
  8. MS CONTIN [Concomitant]

REACTIONS (3)
  - ALANINE AMINOTRANSFERASE INCREASED [None]
  - ASPARTATE AMINOTRANSFERASE INCREASED [None]
  - HEPATIC STEATOSIS [None]
